FAERS Safety Report 8040889-0 (Version None)
Quarter: 2012Q1

REPORT INFORMATION
  Report Type: 
  Country: None (occurrence: None)
  Receive Date: 20120112
  Receipt Date: 20120105
  Transmission Date: 20120608
  Serious: No
  Sender: FDA-Public Use
  Company Number: US-BIOGENIDEC-2011BI022908

PATIENT
  Age: 55 Year
  Sex: Male

DRUGS (3)
  1. AVONEX [Concomitant]
     Indication: MULTIPLE SCLEROSIS
     Route: 030
  2. TYSABRI [Suspect]
     Indication: MULTIPLE SCLEROSIS
     Route: 042
     Dates: start: 20080908, end: 20110518
  3. TYSABRI [Suspect]
     Route: 042
     Dates: start: 20110916

REACTIONS (7)
  - CARDIAC DISORDER [None]
  - OEDEMA [None]
  - PNEUMONITIS [None]
  - PULMONARY OEDEMA [None]
  - PULMONARY FIBROSIS [None]
  - BRONCHITIS [None]
  - DYSPNOEA [None]
